FAERS Safety Report 6104893-1 (Version None)
Quarter: 2009Q1

REPORT INFORMATION
  Report Type: 
  Country: None (occurrence: None)
  Receive Date: 20090306
  Receipt Date: 20090303
  Transmission Date: 20090719
  Serious: Yes (Other)
  Sender: FDA-Public Use
  Company Number: NL-BAYER-200714798GDS

PATIENT
  Age: 72 Year
  Sex: Male

DRUGS (2)
  1. NEXAVAR [Suspect]
     Indication: DRUG USE FOR UNKNOWN INDICATION
     Route: 065
     Dates: start: 20070730
  2. IMODIUM [Concomitant]
     Indication: DIARRHOEA
     Route: 065

REACTIONS (11)
  - ARRHYTHMIA [None]
  - BACK PAIN [None]
  - BLOOD PRESSURE INCREASED [None]
  - CONSTIPATION [None]
  - DIARRHOEA [None]
  - DYSPHONIA [None]
  - FATIGUE [None]
  - METASTASES TO PANCREAS [None]
  - PANCREATIC ENLARGEMENT [None]
  - RIB FRACTURE [None]
  - WEIGHT DECREASED [None]
